FAERS Safety Report 4822680-9 (Version None)
Quarter: 2005Q4

REPORT INFORMATION
  Report Type: 
  Country: None (occurrence: None)
  Receive Date: 20051108
  Receipt Date: 20051025
  Transmission Date: 20060501
  Serious: Yes (Other)
  Sender: FDA-Public Use
  Company Number: JP-GLAXOSMITHKLINE-B0398575A

PATIENT
  Age: 30 Year
  Sex: Male

DRUGS (7)
  1. ZIAGEN [Suspect]
     Indication: HIV INFECTION
     Dosage: 300MG TWICE PER DAY
     Route: 048
     Dates: start: 19990329
  2. VIDEX EC [Suspect]
     Indication: HIV INFECTION
     Dosage: 250MG PER DAY
     Route: 048
     Dates: start: 20010421
  3. KALETRA [Suspect]
     Indication: HIV INFECTION
     Dosage: 6CAP PER DAY
     Route: 048
     Dates: start: 20020304
  4. ATAZANAVIR [Suspect]
     Indication: ACQUIRED IMMUNODEFICIENCY SYNDROME
     Dosage: 300MG PER DAY
     Route: 048
     Dates: start: 20041008
  5. ZERIT [Concomitant]
     Indication: ACQUIRED IMMUNODEFICIENCY SYNDROME
     Dosage: 40MG TWICE PER DAY
     Route: 048
     Dates: start: 19980114, end: 20040527
  6. TENOFOVIR DISOPROXIL FUMARATE [Concomitant]
     Indication: ACQUIRED IMMUNODEFICIENCY SYNDROME
     Route: 048
     Dates: start: 20040528, end: 20041004
  7. RECOMBINATE [Concomitant]
     Indication: FACTOR VIII DEFICIENCY
     Route: 058

REACTIONS (3)
  - ERYTHEMA [None]
  - PLATELET COUNT DECREASED [None]
  - RASH [None]
